FAERS Safety Report 5367347-6 (Version None)
Quarter: 2007Q2

REPORT INFORMATION
  Report Type: 
  Country: None (occurrence: None)
  Receive Date: 20070619
  Receipt Date: 20070608
  Transmission Date: 20071010
  Serious: Yes (Disabling)
  Sender: FDA-Public Use
  Company Number: 2007AL002335

PATIENT
  Age: 52 Year
  Sex: Female

DRUGS (1)
  1. NAPROXEN     DELAYED-RELEASE TABLETS, 500 MG [Suspect]
     Dosage: PO
     Route: 048

REACTIONS (1)
  - RENAL FAILURE CHRONIC [None]
